FAERS Safety Report 5188478-X (Version None)
Quarter: 2006Q4

REPORT INFORMATION
  Report Type: 
  Country: None (occurrence: None)
  Receive Date: 20061214
  Receipt Date: 20061201
  Transmission Date: 20070319
  Serious: Yes (Hospitalization)
  Sender: FDA-Public Use
  Company Number: 2006008805

PATIENT
  Age: 63 Year
  Sex: Female
  Weight: 99.7 kg

DRUGS (9)
  1. SUTENT [Suspect]
     Indication: RENAL CELL CARCINOMA STAGE UNSPECIFIED
     Dosage: 50 MG (50 MG, 1 IN 1 D), ORAL
     Route: 048
     Dates: start: 20060701
  2. LECITHIN (LECITHIN) [Concomitant]
  3. FERROUS SULFATE TAB [Concomitant]
  4. COLACE (DOCUSATE SODIUM) [Concomitant]
  5. ARANESP [Concomitant]
  6. TYLENOL [Concomitant]
  7. ASPIRIN [Concomitant]
  8. LISINOPRIL [Concomitant]
  9. ZOMETA [Concomitant]

REACTIONS (13)
  - ANAEMIA [None]
  - ASTHENIA [None]
  - ATELECTASIS [None]
  - CARDIAC FAILURE CONGESTIVE [None]
  - CONDITION AGGRAVATED [None]
  - CONFUSIONAL STATE [None]
  - DEHYDRATION [None]
  - FULL BLOOD COUNT DECREASED [None]
  - MALIGNANT NEOPLASM PROGRESSION [None]
  - ORTHOSTATIC HYPOTENSION [None]
  - RENAL CELL CARCINOMA STAGE UNSPECIFIED [None]
  - SINUS DISORDER [None]
  - SYNCOPE [None]
